FAERS Safety Report 18404311 (Version 1)
Quarter: 2020Q4

REPORT INFORMATION
  Report Type: Spontaneous
  Country: US (occurrence: US)
  Receive Date: 20201020
  Receipt Date: 20201020
  Transmission Date: 20210114
  Serious: Yes (Death)
  Sender: FDA-Public Use
  Company Number: None

PATIENT
  Sex: Male

DRUGS (4)
  1. OCTREOTIDE 100MCG/ML SYR [Suspect]
     Active Substance: OCTREOTIDE
     Indication: ENDOCRINE NEOPLASM MALIGNANT
     Dosage: DOSE/AMOUNT: 1 SYR
     Route: 058
     Dates: start: 20200923
  2. CAPECITABINE. [Suspect]
     Active Substance: CAPECITABINE
     Dosage: FREQUENCY: DAYS 1-14 OF EACH 28 DAY CYCLE
     Route: 048
  3. CAPECITABINE. [Suspect]
     Active Substance: CAPECITABINE
     Dosage: FREQUENCY: ON DAYS 1014 OF EACH 28 DAY CYCLE
     Route: 048
  4. TEMOZOLOMIDE. [Suspect]
     Active Substance: TEMOZOLOMIDE
     Dosage: FREQUENCY: ON DAYS 10-14 OF A 28 DAY CYCLE. TAKE NAUSEA MEDICATION30 MINUTES PRIOR
     Route: 048

REACTIONS (1)
  - Death [None]
